FAERS Safety Report 6354472-6 (Version None)
Quarter: 2009Q3

REPORT INFORMATION
  Report Type: 
  Country: None (occurrence: None)
  Receive Date: 20090914
  Receipt Date: 20090902
  Transmission Date: 20100115
  Serious: Yes (Other)
  Sender: FDA-Public Use
  Company Number: US-NOVOPROD-291249

PATIENT
  Age: 15 Year
  Sex: Male
  Weight: 58.18 kg

DRUGS (2)
  1. NORDITROPIN NORDIFLEX [Suspect]
     Indication: GROWTH HORMONE DEFICIENCY
     Dosage: 2.7 MG, QD
     Route: 058
     Dates: start: 20070901, end: 20090831
  2. NORDITROPIN NORDIFLEX [Suspect]
     Dosage: 3 MG, QD
     Route: 058
     Dates: start: 20090901

REACTIONS (1)
  - TUBERCULOSIS [None]
